FAERS Safety Report 9330078 (Version 1)
Quarter: 2013Q2

REPORT INFORMATION
  Report Type: Report from Study
  Country: US (occurrence: US)
  Receive Date: 20130604
  Receipt Date: 20130604
  Transmission Date: 20140414
  Serious: Yes (Death)
  Sender: FDA-Public Use
  Company Number: US-B.I. PHARMACEUTICALS,INC./RIDGEFIELD-2013-BI-15707GD

PATIENT
  Age: 1 Day
  Sex: Male

DRUGS (2)
  1. VIRAMUNE [Suspect]
     Indication: PROPHYLAXIS AGAINST HIV INFECTION
     Route: 064
  2. ANTIRETROVIRAL AGENT [Suspect]
     Indication: PROPHYLAXIS AGAINST HIV INFECTION
     Route: 064

REACTIONS (1)
  - Neonatal asphyxia [Fatal]
